FAERS Safety Report 6452713-8 (Version None)
Quarter: 2009Q4

REPORT INFORMATION
  Report Type: 
  Country: None (occurrence: None)
  Receive Date: 20091123
  Receipt Date: 20091123
  Transmission Date: 20100525
  Serious: Yes (Other)
  Sender: FDA-Public Use
  Company Number: None

PATIENT
  Age: 61 Year
  Sex: Female
  Weight: 58.9676 kg

DRUGS (1)
  1. TOPAMAX [Suspect]
     Indication: MIGRAINE
     Dosage: 100MG PO BID
     Route: 048
     Dates: start: 20090601, end: 20090701

REACTIONS (3)
  - ABDOMINAL PAIN [None]
  - BACK PAIN [None]
  - PRODUCT SUBSTITUTION ISSUE [None]
